FAERS Safety Report 5240154-0 (Version None)
Quarter: 2007Q1

REPORT INFORMATION
  Report Type: 
  Country: None (occurrence: None)
  Receive Date: 20070216
  Receipt Date: 20070130
  Transmission Date: 20070707
  Serious: Yes (Other)
  Sender: FDA-Public Use
  Company Number: US-PFIZER INC-2007011394

PATIENT

DRUGS (1)
  1. IRINOTECAN HCL [Suspect]
     Route: 065

REACTIONS (1)
  - DRUG INEFFECTIVE [None]
